FAERS Safety Report 18276401 (Version 1)
Quarter: 2020Q3

REPORT INFORMATION
  Report Type: Spontaneous
  Country: BR (occurrence: BR)
  Receive Date: 20200917
  Receipt Date: 20200917
  Transmission Date: 20201103
  Serious: Yes (Other)
  Sender: FDA-Public Use
  Company Number: BR-REGENERON PHARMACEUTICALS, INC.-2020-76154

PATIENT

DRUGS (1)
  1. EYLEA [Suspect]
     Active Substance: AFLIBERCEPT
     Indication: NEOVASCULAR AGE-RELATED MACULAR DEGENERATION
     Dosage: MONTHLY OR MAXIMUM BIMONTHLY

REACTIONS (4)
  - Visual impairment [Unknown]
  - Inappropriate schedule of product administration [Unknown]
  - Eye haemorrhage [Unknown]
  - Vision blurred [Unknown]
